FAERS Safety Report 17149035 (Version 2)
Quarter: 2019Q4

REPORT INFORMATION
  Report Type: Report from Study
  Country: RO (occurrence: RO)
  Receive Date: 20191213
  Receipt Date: 20191218
  Transmission Date: 20200122
  Serious: Yes (Death, Hospitalization)
  Sender: FDA-Public Use
  Company Number: RO-ROCHE-2442301

PATIENT
  Sex: Female
  Weight: 67 kg

DRUGS (3)
  1. MABTHERA [Suspect]
     Active Substance: RITUXIMAB
     Indication: LYMPHOMA
     Route: 065
     Dates: start: 201906
  2. MABTHERA [Suspect]
     Active Substance: RITUXIMAB
     Route: 065
     Dates: start: 20190814, end: 20191118
  3. CHOP [Concomitant]
     Active Substance: CYCLOPHOSPHAMIDE\DOXORUBICIN\PREDNISONE\VINCRISTINE
     Indication: LYMPHOMA
     Route: 065
     Dates: start: 20190712, end: 20191118

REACTIONS (9)
  - Gait disturbance [Unknown]
  - Diarrhoea [Unknown]
  - Gastrointestinal disorder [Fatal]
  - Cardiac arrest [Unknown]
  - Immunodeficiency [Unknown]
  - Asthenia [Unknown]
  - Febrile neutropenia [Unknown]
  - Peritonitis [Fatal]
  - Nasopharyngitis [Unknown]
